FAERS Safety Report 16073665 (Version 5)
Quarter: 2021Q1

REPORT INFORMATION
  Report Type: Report from Study
  Country: US (occurrence: US)
  Receive Date: 20190314
  Receipt Date: 20210319
  Transmission Date: 20210419
  Serious: No
  Sender: FDA-Public Use
  Company Number: PHEH2019US010193

PATIENT
  Sex: Female

DRUGS (3)
  1. AFINITOR [Suspect]
     Active Substance: EVEROLIMUS
     Dosage: UNK UNK, QD (5 MG ALTERNATING 2.5 MG EVERY OTHER DAY)
     Route: 065
  2. AFINITOR [Suspect]
     Active Substance: EVEROLIMUS
     Dosage: 2.5 MG, QD
     Route: 048
  3. AFINITOR [Suspect]
     Active Substance: EVEROLIMUS
     Indication: ASTROCYTOMA, LOW GRADE
     Dosage: 5 MG, QD
     Route: 048
     Dates: start: 20141101

REACTIONS (7)
  - Drug level decreased [Unknown]
  - Blood triglycerides abnormal [Recovering/Resolving]
  - Throat irritation [Unknown]
  - Blood cholesterol increased [Unknown]
  - Influenza [Unknown]
  - Product dose omission issue [Unknown]
  - Drug level increased [Unknown]
